FAERS Safety Report 13833844 (Version 1)
Quarter: 2017Q3

REPORT INFORMATION
  Report Type: Spontaneous
  Country: FR (occurrence: FR)
  Receive Date: 20170804
  Receipt Date: 20170804
  Transmission Date: 20171127
  Serious: Yes (Hospitalization)
  Sender: FDA-Public Use
  Company Number: FR-BAYER-2017-141448

PATIENT
  Age: 53 Year
  Sex: Female

DRUGS (10)
  1. INEXIUM [Concomitant]
     Active Substance: ESOMEPRAZOLE
     Dosage: UNK
     Dates: end: 20170713
  2. TRANSIPEG [MACROGOL] [Concomitant]
     Dosage: UNK
  3. NUROFEN [Concomitant]
     Active Substance: IBUPROFEN
     Dosage: UNK
     Dates: end: 20170713
  4. EFFEXOR [Concomitant]
     Active Substance: VENLAFAXINE HYDROCHLORIDE
     Dosage: UNK
     Dates: end: 20170713
  5. OPTIJECT [Concomitant]
     Active Substance: IOVERSOL
     Dosage: UNK
  6. ASPIRIN. [Suspect]
     Active Substance: ASPIRIN
     Dosage: 100 MG, UNK
     Route: 048
  7. CRESTOR [Concomitant]
     Active Substance: ROSUVASTATIN CALCIUM
     Dosage: UNK
     Dates: end: 20170713
  8. XANAX [Concomitant]
     Active Substance: ALPRAZOLAM
     Dosage: UNK
  9. OESTRODOSE [Concomitant]
     Active Substance: ESTRADIOL
     Dosage: UNK
  10. MICROPAQUE [Concomitant]
     Active Substance: BARIUM SULFATE
     Dosage: UNK

REACTIONS (4)
  - Neutropenia [Recovering/Resolving]
  - Aphthous ulcer [Unknown]
  - Agranulocytosis [Recovered/Resolved]
  - Pyrexia [Recovering/Resolving]

NARRATIVE: CASE EVENT DATE: 20170710
